FAERS Safety Report 16711093 (Version 2)
Quarter: 2019Q3

REPORT INFORMATION
  Report Type: Spontaneous
  Country: US (occurrence: US)
  Receive Date: 20190816
  Receipt Date: 20190926
  Transmission Date: 20191004
  Serious: Yes (Other)
  Sender: FDA-Public Use
  Company Number: US-AMGEN-USASP2019127230

PATIENT
  Age: 76 Year
  Sex: Female
  Weight: 69.12 kg

DRUGS (1)
  1. PROLIA [Suspect]
     Active Substance: DENOSUMAB
     Indication: OSTEOPOROSIS POSTMENOPAUSAL
     Dosage: 60 MILLIGRAM, Q6MO
     Route: 058
     Dates: start: 2015

REACTIONS (10)
  - Tooth discolouration [Unknown]
  - Osteoarthritis [Unknown]
  - Tooth infection [Unknown]
  - Rash pruritic [Unknown]
  - Ligament sprain [Unknown]
  - Rash erythematous [Unknown]
  - Off label use [Unknown]
  - Fall [Unknown]
  - Tooth fracture [Unknown]
  - Nerve injury [Unknown]

NARRATIVE: CASE EVENT DATE: 2016
